FAERS Safety Report 18089601 (Version 1)
Quarter: 2020Q3

REPORT INFORMATION
  Report Type: Report from Study
  Country: JP (occurrence: JP)
  Receive Date: 20200729
  Receipt Date: 20200729
  Transmission Date: 20201103
  Serious: Yes (Hospitalization)
  Sender: FDA-Public Use
  Company Number: JP-CELGENEUS-JPN-20200706911

PATIENT
  Age: 55 Year
  Sex: Male
  Weight: 51.6 kg

DRUGS (4)
  1. TRAMCET [Concomitant]
     Active Substance: ACETAMINOPHEN\TRAMADOL
     Indication: TUMOUR PAIN
     Route: 065
     Dates: start: 20200702
  2. ABRAXANE [Suspect]
     Active Substance: PACLITAXEL
     Indication: GASTRIC CANCER
     Dosage: 60 MILLIGRAM/SQ. METER
     Route: 041
     Dates: start: 20190212, end: 20200716
  3. CALONAL [Concomitant]
     Active Substance: ACETAMINOPHEN
     Indication: BACK PAIN
     Route: 048
     Dates: start: 20200604
  4. CYRAMZA [Concomitant]
     Active Substance: RAMUCIRUMAB
     Indication: GASTRIC CANCER
     Dosage: 8 MILLIGRAM/KILOGRAM
     Route: 041
     Dates: start: 20190212, end: 20200709

REACTIONS (1)
  - Abdominal pain [Recovering/Resolving]

NARRATIVE: CASE EVENT DATE: 20200720
